FAERS Safety Report 5839677-2 (Version None)
Quarter: 2008Q3

REPORT INFORMATION
  Report Type: 
  Country: None (occurrence: None)
  Receive Date: 20080811
  Receipt Date: 20080801
  Transmission Date: 20090109
  Serious: Yes (Other)
  Sender: FDA-Public Use
  Company Number: PHHY2008JP15140

PATIENT
  Age: 80 Year
  Sex: Female

DRUGS (3)
  1. DIOVAN [Suspect]
     Indication: HYPERTENSION
     Dosage: 40 MG, QD
     Route: 048
  2. DIOVAN [Suspect]
     Indication: ATRIAL FIBRILLATION
  3. PILSICAINIDE HYDROCHLORIDE [Suspect]
     Indication: ATRIAL FIBRILLATION
     Dosage: 150 MG, QD
     Route: 048

REACTIONS (16)
  - ATRIOVENTRICULAR BLOCK FIRST DEGREE [None]
  - BLOOD CREATININE INCREASED [None]
  - BLOOD UREA INCREASED [None]
  - BUNDLE BRANCH BLOCK LEFT [None]
  - CHEST DISCOMFORT [None]
  - DRUG LEVEL INCREASED [None]
  - GAIT DISTURBANCE [None]
  - HAEMODIALYSIS [None]
  - HEADACHE [None]
  - HYPERKALAEMIA [None]
  - HYPOTENSION [None]
  - JAPAN COMA SCALE [None]
  - MALAISE [None]
  - RENAL IMPAIRMENT [None]
  - SINUS BRADYCARDIA [None]
  - TACHYARRHYTHMIA [None]
